FAERS Safety Report 5196032-9 (Version None)
Quarter: 2007Q1

REPORT INFORMATION
  Report Type: 
  Country: None (occurrence: None)
  Receive Date: 20070102
  Receipt Date: 20061227
  Transmission Date: 20070707
  Serious: Yes (Death)
  Sender: FDA-Public Use
  Company Number: PHHO2005CA13184

PATIENT
  Age: 53 Year
  Sex: Male
  Weight: 70 kg

DRUGS (3)
  1. CLOZARIL [Suspect]
     Indication: SCHIZOAFFECTIVE DISORDER
     Dosage: 25 MG BID AND 150 MG HS
     Route: 048
     Dates: start: 19981020, end: 20060924
  2. VALPROIC ACID [Concomitant]
  3. NEURONTIN [Concomitant]

REACTIONS (13)
  - ATELECTASIS [None]
  - BRONCHOPNEUMONIA [None]
  - CARDIOPULMONARY FAILURE [None]
  - HYPERHIDROSIS [None]
  - MITRAL VALVE DISEASE [None]
  - PERICARDIAL DISEASE [None]
  - PNEUMONIA [None]
  - PRODUCTIVE COUGH [None]
  - PULMONARY OEDEMA [None]
  - SOMNOLENCE [None]
  - SYNCOPE [None]
  - TRACHEAL OEDEMA [None]
  - VENTRICULAR HYPERTROPHY [None]
